FAERS Safety Report 7047481-5 (Version None)
Quarter: 2010Q4

REPORT INFORMATION
  Report Type: 
  Country: None (occurrence: None)
  Receive Date: 20101015
  Receipt Date: 20101005
  Transmission Date: 20110411
  Serious: Yes (Hospitalization)
  Sender: FDA-Public Use
  Company Number: AU-ABBOTT-10P-008-0676129-00

PATIENT
  Sex: Male
  Weight: 94 kg

DRUGS (19)
  1. HUMIRA [Suspect]
     Indication: CROHN'S DISEASE
     Dosage: 160MG (BASELINE)/80MG (WEEK 2)
     Route: 058
     Dates: start: 20080909
  2. PANADOL [Concomitant]
     Indication: HEADACHE
     Dates: start: 20081208
  3. AZATHIOPRINE [Concomitant]
     Indication: CROHN'S DISEASE
     Dates: start: 20061001
  4. AZATHIOPRINE [Concomitant]
  5. PREDNISONE [Concomitant]
     Indication: CROHN'S DISEASE
  6. PREDNISONE [Concomitant]
     Dates: start: 20100105, end: 20100111
  7. PREDNISONE [Concomitant]
  8. PREDNISONE [Concomitant]
  9. PREDNISONE [Concomitant]
  10. PREDNISONE [Concomitant]
  11. PREDNISONE [Concomitant]
  12. PREDNISONE [Concomitant]
  13. PREDNISONE [Concomitant]
  14. PREDNISONE [Concomitant]
  15. MESALAMINE [Concomitant]
     Indication: CROHN'S DISEASE
  16. MIDAZOLAM HCL [Concomitant]
     Indication: SEDATIVE THERAPY
     Dates: start: 20091215, end: 20091215
  17. PROPOFOL [Concomitant]
     Indication: SEDATIVE THERAPY
     Dates: start: 20091215, end: 20091215
  18. PROPOFOL [Concomitant]
  19. CALTRATE + D [Concomitant]
     Indication: MINERAL SUPPLEMENTATION
     Dates: start: 20091215

REACTIONS (1)
  - CROHN'S DISEASE [None]
